FAERS Safety Report 18381597 (Version 3)
Quarter: 2020Q4

REPORT INFORMATION
  Report Type: Report from Study
  Country: US (occurrence: US)
  Receive Date: 20201014
  Receipt Date: 20201210
  Transmission Date: 20210114
  Serious: Yes (Death, Hospitalization, Other)
  Sender: FDA-Public Use
  Company Number: US-ADAMAS PHARMA, LLC-2020ADA02069

PATIENT
  Age: 84 Year
  Sex: Male
  Weight: 68.03 kg

DRUGS (10)
  1. SINEMET [Suspect]
     Active Substance: CARBIDOPA\LEVODOPA
     Dosage: UNK, 3X/DAY
     Dates: end: 202009
  2. AMLODIPINE [Concomitant]
     Active Substance: AMLODIPINE BESYLATE
  3. GOCOVRI [Suspect]
     Active Substance: AMANTADINE
     Dosage: 274 MG, 1X/DAY, AT BEDTIME
     Route: 048
     Dates: start: 202009, end: 202009
  4. TAMSULOSIN [Concomitant]
     Active Substance: TAMSULOSIN
  5. GOCOVRI [Suspect]
     Active Substance: AMANTADINE
     Indication: DYSKINESIA
     Dosage: 137 MG, 1X/DAY AT BEDTIME
     Route: 048
     Dates: start: 20200728, end: 20200803
  6. METOPROLOL TARTRATE. [Concomitant]
     Active Substance: METOPROLOL TARTRATE
  7. ALFUZOSIN [Suspect]
     Active Substance: ALFUZOSIN
     Dosage: UNK
     Dates: start: 2020, end: 2020
  8. CILOSTAZOL. [Concomitant]
     Active Substance: CILOSTAZOL
  9. GOCOVRI [Suspect]
     Active Substance: AMANTADINE
     Dosage: 274 MG, 1X/DAY AT BEDTIME
     Route: 048
     Dates: start: 20200804, end: 20200829
  10. LORAZEPAM. [Concomitant]
     Active Substance: LORAZEPAM
     Dosage: 0.5 MG, 2X/DAY

REACTIONS (16)
  - Respiratory failure [Unknown]
  - Acute kidney injury [Unknown]
  - Hallucination, auditory [Recovered/Resolved]
  - Hypertension [Unknown]
  - Asthenia [Not Recovered/Not Resolved]
  - Delirium [Recovering/Resolving]
  - Dysuria [Unknown]
  - Balance disorder [Recovering/Resolving]
  - Abnormal dreams [Recovered/Resolved]
  - Fall [Recovered/Resolved]
  - Death [Fatal]
  - Parkinson^s disease [Not Recovered/Not Resolved]
  - Hospice care [Not Recovered/Not Resolved]
  - Hypovolaemia [Unknown]
  - Product dose omission issue [Unknown]
  - Urinary retention [Unknown]

NARRATIVE: CASE EVENT DATE: 2020
